FAERS Safety Report 17463198 (Version 1)
Quarter: 2020Q1

REPORT INFORMATION
  Report Type: Spontaneous
  Country: US (occurrence: US)
  Receive Date: 20200213
  Receipt Date: 20200213
  Transmission Date: 20200409
  Serious: Yes (Hospitalization)
  Sender: FDA-Public Use
  Company Number: None

PATIENT
  Age: 69 Year
  Sex: Male
  Weight: 107 kg

DRUGS (2)
  1. CLOPIDOGREL (CLOPIDOGREL BISULFATE 75MG TAB) [Suspect]
     Active Substance: CLOPIDOGREL BISULFATE
     Indication: CORONARY ARTERIAL STENT INSERTION
     Route: 048
     Dates: start: 20090910
  2. WARFARIN (WARFARIN NA (EXELAN) 2MG TAB [Suspect]
     Active Substance: WARFARIN
     Indication: ATRIAL FIBRILLATION
     Route: 048
     Dates: start: 20121101

REACTIONS (10)
  - Diarrhoea haemorrhagic [None]
  - Melaena [None]
  - Gastric haemorrhage [None]
  - Anticoagulation drug level above therapeutic [None]
  - Large intestine polyp [None]
  - Gastrointestinal haemorrhage [None]
  - Haematocrit decreased [None]
  - Epistaxis [None]
  - Viral infection [None]
  - Haemorrhoids [None]

NARRATIVE: CASE EVENT DATE: 20191115
